FAERS Safety Report 9802947 (Version 1)
Quarter: 2014Q1

REPORT INFORMATION
  Report Type: Spontaneous
  Country: US (occurrence: None)
  Receive Date: 20140106
  Receipt Date: 20140106
  Transmission Date: 20141002
  Serious: Yes (Other)
  Sender: FDA-Public Use
  Company Number: None

PATIENT
  Age: 40 Year
  Sex: Female
  Weight: 58.06 kg

DRUGS (1)
  1. AZITHROMYCIN 250 MG [Suspect]
     Indication: SINUSITIS
     Dosage: 2 PILLSX1, THEN 1 PILL X4D
     Route: 048
     Dates: start: 20131230, end: 20131231

REACTIONS (11)
  - Dizziness [None]
  - Disorientation [None]
  - Disturbance in attention [None]
  - Somnolence [None]
  - Nausea [None]
  - Cold sweat [None]
  - Feeling of body temperature change [None]
  - Insomnia [None]
  - Malaise [None]
  - Decreased appetite [None]
  - Product substitution issue [None]
